FAERS Safety Report 8319823-1 (Version None)
Quarter: 2012Q2

REPORT INFORMATION
  Report Type: 
  Country: None (occurrence: None)
  Receive Date: 20120427
  Receipt Date: 20120423
  Transmission Date: 20120825
  Serious: Yes (Hospitalization)
  Sender: FDA-Public Use
  Company Number: JP-AMGEN-JPNCT2011025880

PATIENT
  Age: 62 Year
  Sex: Male
  Weight: 46 kg

DRUGS (18)
  1. PANITUMUMAB [Suspect]
     Indication: COLORECTAL CANCER
     Dosage: 300 MG, Q2WK
     Route: 041
     Dates: start: 20110311, end: 20110506
  2. FLUOROURACIL [Concomitant]
     Route: 040
     Dates: start: 20110624
  3. LEVOLEUCOVORIN CALCIUM [Concomitant]
     Indication: COLORECTAL CANCER
     Route: 041
     Dates: start: 20110311, end: 20110506
  4. FLUOROURACIL [Concomitant]
     Indication: COLORECTAL CANCER
     Route: 040
     Dates: start: 20110311, end: 20110506
  5. FLUOROURACIL [Concomitant]
     Route: 041
     Dates: start: 20110311, end: 20110506
  6. SEROTONE [Concomitant]
     Route: 041
     Dates: start: 20110311, end: 20110506
  7. DECADRON [Concomitant]
     Dosage: 4 MG, Q2WK
     Route: 041
     Dates: start: 20110311
  8. PRIMPERAN TAB [Concomitant]
     Dosage: 10 MG, Q2WK
     Route: 042
     Dates: start: 20110311
  9. FLUOROURACIL [Concomitant]
     Route: 041
     Dates: start: 20110624
  10. DECADRON [Concomitant]
     Route: 041
     Dates: start: 20110624
  11. SEROTONE [Concomitant]
     Dosage: 10 MG, Q2WK
     Route: 041
     Dates: start: 20110311, end: 20110624
  12. DECADRON [Concomitant]
     Route: 041
     Dates: start: 20110311, end: 20110506
  13. OXALIPLATIN [Concomitant]
     Route: 041
     Dates: start: 20110624
  14. OXALIPLATIN [Concomitant]
     Indication: COLORECTAL CANCER
     Dosage: 120 MG, Q2WK
     Route: 041
     Dates: start: 20110311, end: 20110506
  15. LEVOLEUCOVORIN CALCIUM [Concomitant]
     Route: 041
     Dates: start: 20110624
  16. SEROTONE [Concomitant]
     Route: 041
     Dates: start: 20110624
  17. PRIMPERAN TAB [Concomitant]
     Route: 042
     Dates: start: 20110311, end: 20110506
  18. PRIMPERAN TAB [Concomitant]
     Route: 042
     Dates: start: 20110624

REACTIONS (2)
  - INTERSTITIAL LUNG DISEASE [None]
  - RASH [None]
